FAERS Safety Report 5696468-3 (Version None)
Quarter: 2008Q2

REPORT INFORMATION
  Report Type: 
  Country: None (occurrence: None)
  Receive Date: 20080408
  Receipt Date: 20080310
  Transmission Date: 20081010
  Serious: No
  Sender: FDA-Public Use
  Company Number: US-BOEHRINGER INGELHEIM GMBH, GERMANY-2008-BP-03598BP

PATIENT
  Age: 65 Year
  Sex: Male

DRUGS (13)
  1. CATAPRES-TTS-1 [Suspect]
     Indication: BLOOD PRESSURE MANAGEMENT
     Dates: start: 20080101, end: 20080315
  2. METOPROLOL TARTRATE [Concomitant]
  3. NORVASC [Concomitant]
  4. LISINOPRIL [Concomitant]
  5. HYDROCHLOROTHIAZIDE [Concomitant]
  6. TRICOR [Concomitant]
  7. LIPITOR [Concomitant]
  8. PLAVIX [Concomitant]
  9. ADULT ASPIRIN [Concomitant]
  10. IBUPROFEN [Concomitant]
  11. CITRUCEL [Concomitant]
  12. OMEGA FISH OIL [Concomitant]
  13. GLUCOSAMINE [Concomitant]

REACTIONS (5)
  - APPLICATION SITE PRURITUS [None]
  - PRURITUS [None]
  - RASH [None]
  - SKIN IRRITATION [None]
  - URTICARIA [None]
